FAERS Safety Report 8138625-2 (Version None)
Quarter: 2012Q1

REPORT INFORMATION
  Report Type: 
  Country: None (occurrence: None)
  Receive Date: 20120213
  Receipt Date: 20120202
  Transmission Date: 20120608
  Serious: Yes (Hospitalization)
  Sender: FDA-Public Use
  Company Number: 1082115

PATIENT
  Age: 39 Year
  Sex: Female
  Weight: 55 kg

DRUGS (8)
  1. DEXMEDETOMIDINE HYDROCHLORIDE [Suspect]
     Indication: SEDATION
     Dosage: 0.6 MCG/KG/HR, INTRAVENOUS DRIP
     Route: 041
     Dates: start: 20111012, end: 20111012
  2. DEXTROSE [Concomitant]
  3. CALCIUM CHLORIDE [Suspect]
     Indication: BLOOD CALCIUM
     Dosage: 0.5 MOL/20 ML, INTRAVENOUS (NOT OTHERWISE SPECIFIED)
     Route: 042
     Dates: start: 20111012, end: 20111012
  4. HEPARIN [Concomitant]
  5. (FENTANYL) [Concomitant]
  6. SODIUM CHLORIDE [Concomitant]
  7. CEFAZOLIN SODIUM [Concomitant]
  8. (ELECTROLYTE /00909901/) [Concomitant]

REACTIONS (8)
  - CHOLECYSTECTOMY [None]
  - ERYTHEMA [None]
  - WOUND COMPLICATION [None]
  - BLISTER [None]
  - SWELLING [None]
  - INJECTION SITE EXTRAVASATION [None]
  - BLOOD CALCIUM DECREASED [None]
  - SKIN NECROSIS [None]
